FAERS Safety Report 25519586 (Version 5)
Quarter: 2025Q4

REPORT INFORMATION
  Report Type: Report from Study
  Country: US (occurrence: US)
  Receive Date: 20250704
  Receipt Date: 20251001
  Transmission Date: 20260117
  Serious: Yes (Other)
  Sender: MALLINCKRODT
  Company Number: US-MALLINCKRODT-MNK202504050

PATIENT
  Age: 82 Year
  Sex: Female

DRUGS (16)
  1. CORTICOTROPIN [Suspect]
     Active Substance: CORTICOTROPIN
     Indication: Illness
     Dosage: 40 UNITS
     Route: 058
  2. CHOLECALCIFEROL [Concomitant]
     Active Substance: CHOLECALCIFEROL
     Dosage: UNKNOWN
  3. VITAMIN B-1 [THIAMINE HYDROCHLORIDE] [Concomitant]
     Dosage: UNKNOWN
  4. PROBIOTIC ACIDOPHILUS [LACTOBACILLUS ACIDOPHILUS] [Concomitant]
     Dosage: UNKNOWN
  5. NAPROXEN [Concomitant]
     Active Substance: NAPROXEN
     Dosage: UNKNOWN
  6. GLIPIZIDE [Concomitant]
     Active Substance: GLIPIZIDE
     Dosage: UNKNOWN
  7. LISINOPRIL AND HYDROCHLOROTHIAZIDE [Concomitant]
     Active Substance: HYDROCHLOROTHIAZIDE\LISINOPRIL
     Dosage: UNKNOWN
  8. SINGULAIR [Concomitant]
     Active Substance: MONTELUKAST SODIUM
     Dosage: UNKNOWN
  9. DIFLUPREDNATE [Concomitant]
     Active Substance: DIFLUPREDNATE
     Dosage: UNKNOWN
  10. DICLOFENAC SODIUM [Concomitant]
     Active Substance: DICLOFENAC SODIUM
     Dosage: UNKNOWN
  11. CYCLOGYL [Concomitant]
     Active Substance: CYCLOPENTOLATE HYDROCHLORIDE
     Dosage: UNKNOWN
  12. CYCLOPENTOLATE HYDROCHLORIDE [Concomitant]
     Active Substance: CYCLOPENTOLATE HYDROCHLORIDE
     Dosage: UNKNOWN
  13. PIOGLITAZONE [Concomitant]
     Active Substance: PIOGLITAZONE
     Dosage: UNKNOWN
  14. VITAMINS NOS [Concomitant]
     Active Substance: VITAMINS
     Dosage: UNKNOWN
  15. MAXEPA [DOCOSAHEXAENOIC ACID;EICOSAPENTAENOIC ACID] [Concomitant]
     Dosage: UNKNOWN
  16. BAYER ASPIRIN [Concomitant]
     Active Substance: ASPIRIN
     Dosage: UNKNOWN

REACTIONS (12)
  - Cataract operation [Unknown]
  - Bronchitis [Recovering/Resolving]
  - Ocular hyperaemia [Not Recovered/Not Resolved]
  - Eye swelling [Not Recovered/Not Resolved]
  - Eye inflammation [Unknown]
  - Abnormal sensation in eye [Unknown]
  - Dry eye [Unknown]
  - Eye pain [Not Recovered/Not Resolved]
  - Arthritis [Unknown]
  - Injection site haemorrhage [Unknown]
  - Dizziness [Unknown]
  - Anger [Unknown]

NARRATIVE: CASE EVENT DATE: 20240101
